FAERS Safety Report 24402771 (Version 1)
Quarter: 2024Q4

REPORT INFORMATION
  Report Type: Report from Study
  Country: US (occurrence: US)
  Receive Date: 20241007
  Receipt Date: 20241007
  Transmission Date: 20250114
  Serious: Yes (Other)
  Sender: ALEXION PHARMACEUTICALS
  Company Number: US-AstraZeneca-CH-00713907A

PATIENT

DRUGS (4)
  1. FASENRA [Suspect]
     Active Substance: BENRALIZUMAB
     Dosage: UNK UNK, QMONTH
  2. FASENRA [Suspect]
     Active Substance: BENRALIZUMAB
     Dosage: UNK UNK, QMONTH
  3. FASENRA [Suspect]
     Active Substance: BENRALIZUMAB
     Dosage: UNK UNK, QMONTH
  4. FASENRA [Suspect]
     Active Substance: BENRALIZUMAB
     Dosage: UNK UNK, QMONTH

REACTIONS (5)
  - Dementia Alzheimer^s type [Unknown]
  - Wheezing [Unknown]
  - Dyspnoea [Unknown]
  - Product dose omission issue [Unknown]
  - Product use issue [Unknown]
